FAERS Safety Report 14608177 (Version 2)
Quarter: 2018Q1

REPORT INFORMATION
  Report Type: Spontaneous
  Country: BE (occurrence: BE)
  Receive Date: 20180307
  Receipt Date: 20180329
  Transmission Date: 20180509
  Serious: Yes (Hospitalization, Other)
  Sender: FDA-Public Use
  Company Number: BE-ELI_LILLY_AND_COMPANY-BE201802009725

PATIENT
  Age: 55 Year
  Sex: Male

DRUGS (1)
  1. ZYPADHERA [Suspect]
     Active Substance: OLANZAPINE PAMOATE
     Indication: PRODUCT USED FOR UNKNOWN INDICATION
     Dosage: 405 MG, EVERY 3 WEEKS
     Route: 030

REACTIONS (9)
  - Post-injection delirium sedation syndrome [Recovered/Resolved]
  - Speech disorder [Recovered/Resolved]
  - Psychomotor hyperactivity [Recovered/Resolved]
  - Ataxia [Recovered/Resolved]
  - Anxiety [Unknown]
  - Post-injection delirium sedation syndrome [Unknown]
  - Somnolence [Recovered/Resolved]
  - Confusional state [Recovered/Resolved]
  - Disorientation [Recovered/Resolved]

NARRATIVE: CASE EVENT DATE: 201707
